FAERS Safety Report 5421040-X (Version None)
Quarter: 2007Q3

REPORT INFORMATION
  Report Type: 
  Country: None (occurrence: None)
  Receive Date: 20070821
  Receipt Date: 20070814
  Transmission Date: 20080115
  Serious: Yes (Hospitalization)
  Sender: FDA-Public Use
  Company Number: A0670175A

PATIENT
  Age: 51 Year
  Sex: Male

DRUGS (11)
  1. PAXIL [Suspect]
     Indication: DEPRESSION
     Dosage: 40MG PER DAY
     Route: 048
     Dates: start: 19970101
  2. PLAVIX [Concomitant]
  3. METOPROLOL SUCCINATE [Concomitant]
  4. LIPITOR [Concomitant]
  5. NEXIUM [Concomitant]
  6. VALIUM [Concomitant]
  7. CYMBALTA [Concomitant]
  8. ADVIL LIQUI-GELS [Concomitant]
  9. UNSPECIFIED MEDICATION [Concomitant]
  10. XANAX [Concomitant]
  11. LEXAPRO [Concomitant]

REACTIONS (11)
  - ARTERIAL DISORDER [None]
  - CHEST DISCOMFORT [None]
  - FEELING HOT [None]
  - HEADACHE [None]
  - HOT FLUSH [None]
  - HYPERTENSION [None]
  - IRRITABILITY [None]
  - MIGRAINE [None]
  - MYOCARDIAL INFARCTION [None]
  - NAUSEA [None]
  - THERAPEUTIC RESPONSE DECREASED [None]
